FAERS Safety Report 25490242 (Version 3)
Quarter: 2025Q3

REPORT INFORMATION
  Report Type: Spontaneous
  Country: EU (occurrence: EU)
  Receive Date: 20250628
  Receipt Date: 20250710
  Transmission Date: 20251021
  Serious: Yes (Other)
  Sender: NOVARTIS
  Company Number: EU-002147023-NVSC2021PL075796

PATIENT
  Age: 17 Year
  Sex: Female

DRUGS (16)
  1. CYCLOSPORINE [Suspect]
     Active Substance: CYCLOSPORINE
     Indication: Prophylaxis against graft versus host disease
     Route: 065
  2. RITUXIMAB [Suspect]
     Active Substance: RITUXIMAB
     Indication: Epstein-Barr virus infection reactivation
     Dosage: 375 MG/M2, QW
     Route: 042
  3. TACROLIMUS [Suspect]
     Active Substance: TACROLIMUS
     Indication: Prophylaxis against graft versus host disease
     Route: 065
  4. TACROLIMUS [Suspect]
     Active Substance: TACROLIMUS
     Indication: Prophylaxis against transplant rejection
  5. IMATINIB [Suspect]
     Active Substance: IMATINIB
     Indication: Philadelphia positive acute lymphocytic leukaemia
     Route: 065
  6. TREOSULFAN [Suspect]
     Active Substance: TREOSULFAN
     Indication: Prophylaxis against transplant rejection
     Route: 042
  7. TREOSULFAN [Suspect]
     Active Substance: TREOSULFAN
     Indication: Prophylaxis against transplant rejection
  8. FLUDARABINE [Suspect]
     Active Substance: FLUDARABINE PHOSPHATE
     Indication: Prophylaxis against transplant rejection
     Route: 065
  9. FLUDARABINE [Suspect]
     Active Substance: FLUDARABINE PHOSPHATE
     Indication: Prophylaxis against transplant rejection
  10. COTRIMOXAZOLE [Suspect]
     Active Substance: SULFAMETHOXAZOLE\TRIMETHOPRIM
     Indication: Infection prophylaxis
     Route: 065
  11. COTRIMOXAZOLE [Suspect]
     Active Substance: SULFAMETHOXAZOLE\TRIMETHOPRIM
     Indication: Cerebral toxoplasmosis
     Dosage: UNK, QMO((60 MG/KG HIGH DOSE))
     Route: 065
  12. COTRIMOXAZOLE [Suspect]
     Active Substance: SULFAMETHOXAZOLE\TRIMETHOPRIM
     Dosage: UNK, QMO(30 MG/KG  )
     Route: 065
  13. THYMOGLOBULIN [Suspect]
     Active Substance: LAPINE T-LYMPHOCYTE IMMUNE GLOBULIN
     Indication: Prophylaxis against transplant rejection
     Route: 065
  14. THYMOGLOBULIN [Suspect]
     Active Substance: LAPINE T-LYMPHOCYTE IMMUNE GLOBULIN
     Indication: Prophylaxis against transplant rejection
  15. PENICILLIN V [Concomitant]
     Active Substance: PENICILLIN V
     Indication: Product used for unknown indication
     Dosage: UNK , QD (60,000 UNITS/KG/DAY )
     Route: 065
  16. FLUCONAZOLE [Concomitant]
     Active Substance: FLUCONAZOLE
     Indication: Product used for unknown indication
     Route: 065

REACTIONS (3)
  - Cerebral toxoplasmosis [Recovered/Resolved]
  - Cytomegalovirus infection reactivation [Recovered/Resolved]
  - Off label use [Unknown]
